FAERS Safety Report 25096656 (Version 2)
Quarter: 2025Q1

REPORT INFORMATION
  Report Type: Spontaneous
  Country: ES (occurrence: ES)
  Receive Date: 20250319
  Receipt Date: 20250327
  Transmission Date: 20250408
  Serious: Yes (Hospitalization, Other)
  Sender: FERRING
  Company Number: ES-FERRINGPH-2025FE01249

PATIENT

DRUGS (3)
  1. DINOPROSTONE [Suspect]
     Active Substance: DINOPROSTONE
     Indication: Labour induction
     Dosage: 1 DOSAGE FORM, ONCE/SINGLE
     Route: 067
     Dates: start: 20250306, end: 20250306
  2. RITODRINE HYDROCHLORIDE [Concomitant]
     Active Substance: RITODRINE HYDROCHLORIDE
     Route: 065
     Dates: start: 20250306, end: 20250306
  3. FERROUS SULFATE [Concomitant]
     Active Substance: FERROUS SULFATE
     Route: 048

REACTIONS (2)
  - Uterine rupture [Recovered/Resolved]
  - Intrapartum haemorrhage [Recovered/Resolved]

NARRATIVE: CASE EVENT DATE: 20250306
